FAERS Safety Report 7290300-2 (Version None)
Quarter: 2011Q1

REPORT INFORMATION
  Report Type: 
  Country: None (occurrence: None)
  Receive Date: 20110208
  Receipt Date: 20110208
  Transmission Date: 20110831
  Serious: Yes (Other)
  Sender: FDA-Public Use
  Company Number: None

PATIENT
  Sex: Female
  Weight: 58.9676 kg

DRUGS (3)
  1. FLUTICASONE [Suspect]
     Indication: SINUSITIS
     Dosage: 2 SPRAYS QD INTRANASAL
     Route: 045
     Dates: start: 20090506
  2. FLUTICASONE [Suspect]
     Indication: SINUSITIS
     Dosage: 2 SPRAYS QD INTRANASAL
     Route: 045
     Dates: start: 20091117
  3. VERAMYST [Suspect]

REACTIONS (1)
  - EPISTAXIS [None]
